FAERS Safety Report 5600652-4 (Version None)
Quarter: 2008Q1

REPORT INFORMATION
  Report Type: 
  Country: None (occurrence: None)
  Receive Date: 20080123
  Receipt Date: 20080114
  Transmission Date: 20080703
  Serious: Yes (Other)
  Sender: FDA-Public Use
  Company Number: US-PFIZER INC-2008004460

PATIENT
  Age: 75 Year
  Sex: Male
  Weight: 95.3 kg

DRUGS (4)
  1. XALATAN [Suspect]
     Indication: GLAUCOMA
  2. KETOCONAZOLE [Concomitant]
  3. HYDROCORTISONE [Concomitant]
  4. GABAPENTIN [Concomitant]

REACTIONS (3)
  - BLISTER [None]
  - EYE IRRITATION [None]
  - FOREIGN BODY SENSATION IN EYES [None]
